FAERS Safety Report 6696804-5 (Version None)
Quarter: 2010Q2

REPORT INFORMATION
  Report Type: 
  Country: None (occurrence: None)
  Receive Date: 20100426
  Receipt Date: 20100422
  Transmission Date: 20101027
  Serious: Yes (Death, Hospitalization)
  Sender: FDA-Public Use
  Company Number: HU-ROCHE-692182

PATIENT
  Sex: Male
  Weight: 78 kg

DRUGS (6)
  1. BEVACIZUMAB [Suspect]
     Indication: RENAL CELL CARCINOMA
     Route: 042
     Dates: start: 20091203, end: 20100310
  2. TEMSIROLIMUS [Suspect]
     Indication: RENAL CELL CARCINOMA
     Route: 042
     Dates: start: 20091203, end: 20100310
  3. TRAMADOL HCL [Concomitant]
     Indication: PAIN
     Dates: start: 20091015
  4. ENOXAPARIN SODIUM [Concomitant]
     Indication: THROMBOSIS PROPHYLAXIS
     Dates: start: 20091027
  5. ALPRAZOLAM [Concomitant]
     Indication: ANXIETY
  6. ONDANSETRON [Concomitant]
     Indication: NAUSEA
     Dates: start: 20100120

REACTIONS (2)
  - CIRCULATORY COLLAPSE [None]
  - DEHYDRATION [None]
